FAERS Safety Report 8154169-6 (Version None)
Quarter: 2012Q1

REPORT INFORMATION
  Report Type: 
  Country: None (occurrence: None)
  Receive Date: 20120221
  Receipt Date: 20120215
  Transmission Date: 20120608
  Serious: Yes (Other)
  Sender: FDA-Public Use
  Company Number: US-PFIZER INC-2011245028

PATIENT
  Sex: Male

DRUGS (1)
  1. EFFEXOR XR [Suspect]
     Dosage: 150 MG, 1X/DAY
     Route: 048

REACTIONS (5)
  - CEREBRAL HAEMORRHAGE [None]
  - IMPAIRED WORK ABILITY [None]
  - COMA [None]
  - PLASMAPHERESIS [None]
  - H1N1 INFLUENZA [None]
